FAERS Safety Report 7861138-X (Version None)
Quarter: 2011Q4

REPORT INFORMATION
  Report Type: 
  Country: None (occurrence: None)
  Receive Date: 20111027
  Receipt Date: 20111017
  Transmission Date: 20120403
  Serious: Yes (Hospitalization, Disabling, Other)
  Sender: FDA-Public Use
  Company Number: FR-VERTEX PHARMACEUTICALS INC.-AE-2011-002120

PATIENT
  Sex: Male
  Weight: 62 kg

DRUGS (8)
  1. VX-950 [Suspect]
     Indication: HEPATITIS C
     Route: 048
     Dates: start: 20110728, end: 20111004
  2. ASPIRIN [Concomitant]
     Indication: ARTERIAL DISORDER
     Route: 048
     Dates: start: 20100101
  3. PEGINTERFERON ALFA-2A [Concomitant]
     Indication: HEPATITIS C
     Dates: start: 20110728
  4. PAROXETINE HCL [Concomitant]
     Indication: DEPRESSION
     Route: 048
     Dates: start: 20100101, end: 20110701
  5. ZANEXTRA [Concomitant]
     Indication: HYPERTENSION
     Route: 048
     Dates: start: 20100101
  6. XANAX [Concomitant]
     Indication: DEPRESSION
     Route: 048
     Dates: start: 20100101, end: 20110701
  7. PRAVASTATIN [Concomitant]
     Indication: DYSLIPIDAEMIA
     Route: 048
     Dates: end: 20110922
  8. RIBAVIRIN [Concomitant]
     Indication: HEPATITIS C
     Dates: start: 20110728

REACTIONS (3)
  - ANAEMIA [None]
  - ASTHENIA [None]
  - DYSPNOEA [None]
